FAERS Safety Report 19014971 (Version 2)
Quarter: 2021Q2

REPORT INFORMATION
  Report Type: Spontaneous
  Country: US (occurrence: US)
  Receive Date: 20210317
  Receipt Date: 20210423
  Transmission Date: 20210717
  Serious: No
  Sender: FDA-Public Use
  Company Number: US-ASTRAZENECA-2021A109838

PATIENT
  Sex: Female
  Weight: 52.2 kg

DRUGS (1)
  1. SYMBICORT [Suspect]
     Active Substance: BUDESONIDE\FORMOTEROL FUMARATE DIHYDRATE
     Indication: COVID-19
     Dosage: 80/4.5MCG 2 PUFFS TWICE A DAY
     Route: 055
     Dates: start: 20201231

REACTIONS (15)
  - Speech disorder [Unknown]
  - Dizziness [Unknown]
  - Fatigue [Unknown]
  - Back pain [Unknown]
  - Middle insomnia [Unknown]
  - Product dose omission issue [Unknown]
  - Arthralgia [Unknown]
  - Headache [Unknown]
  - Dysphonia [Unknown]
  - Chronic obstructive pulmonary disease [Unknown]
  - Cough [Unknown]
  - Withdrawal syndrome [Unknown]
  - Throat irritation [Unknown]
  - Eye pain [Unknown]
  - Insomnia [Unknown]
